FAERS Safety Report 15200940 (Version 2)
Quarter: 2018Q3

REPORT INFORMATION
  Report Type: Spontaneous
  Country: US (occurrence: US)
  Receive Date: 20180726
  Receipt Date: 20180831
  Transmission Date: 20181010
  Serious: No
  Sender: FDA-Public Use
  Company Number: US-ASTRAZENECA-2013BM01677

PATIENT
  Sex: Male
  Weight: 86.2 kg

DRUGS (2)
  1. BYDUREON BCISE [Suspect]
     Active Substance: EXENATIDE
     Indication: TYPE 2 DIABETES MELLITUS
     Route: 058
     Dates: start: 201806
  2. BYDUREON [Suspect]
     Active Substance: EXENATIDE
     Route: 058
     Dates: start: 2012

REACTIONS (6)
  - Abdominal pain upper [Unknown]
  - Incorrect dose administered [Unknown]
  - Device malfunction [Unknown]
  - Injury associated with device [Unknown]
  - Underdose [Unknown]
  - Injection site haemorrhage [Recovered/Resolved]
